FAERS Safety Report 4658435-8 (Version None)
Quarter: 2005Q2

REPORT INFORMATION
  Report Type: 
  Country: None (occurrence: None)
  Receive Date: 20050509
  Receipt Date: 20050426
  Transmission Date: 20051028
  Serious: Yes (Hospitalization, Other)
  Sender: FDA-Public Use
  Company Number: 2005066625

PATIENT
  Age: 59 Year
  Sex: Female
  Weight: 63.5036 kg

DRUGS (14)
  1. CELEBREX [Suspect]
     Indication: FIBROMYALGIA
     Dosage: 400 MG (200 MG, 2 IN 1 D), ORAL
     Route: 048
     Dates: start: 20030101, end: 20040101
  2. PIOGLITAZONE HCL [Concomitant]
  3. LISINOPRIL [Concomitant]
  4. MEGACE [Concomitant]
  5. ESOMEPRAZOLE (ESOMEPRAZOLE) [Concomitant]
  6. CLONAZEPAM [Concomitant]
  7. QUININE SULFATE [Concomitant]
  8. EZETIMIBE (EZETIMIBE) [Concomitant]
  9. COLOSTRUM (COLOSTRUM) [Concomitant]
  10. SERTRALINE HCL [Concomitant]
  11. SERETIDE MITE (FLUTACASONE PROPIONATE, SALMETEROL XINAFOATE) [Concomitant]
  12. FLUTICASONE PROPINOATE (FLUICASONE PROPINOATE) [Concomitant]
  13. VICODIN [Concomitant]
  14. METFORMIN HCL [Concomitant]

REACTIONS (5)
  - DRUG EFFECT DECREASED [None]
  - NAIL DISCOLOURATION [None]
  - PAIN IN EXTREMITY [None]
  - PNEUMONIA [None]
  - THROMBOSIS [None]
